FAERS Safety Report 7482600-8 (Version None)
Quarter: 2011Q2

REPORT INFORMATION
  Report Type: 
  Country: None (occurrence: None)
  Receive Date: 20110516
  Receipt Date: 20110509
  Transmission Date: 20111010
  Serious: Yes (Hospitalization)
  Sender: FDA-Public Use
  Company Number: IT-TEVA-281160ISR

PATIENT
  Sex: Male

DRUGS (3)
  1. INSULIN [Concomitant]
     Dosage: 100 U/ML
  2. CLARITHROMYCIN [Suspect]
     Route: 048
     Dates: start: 20110316, end: 20110316
  3. INSULIN LISPRO [Concomitant]
     Dosage: 100 U/ML

REACTIONS (1)
  - HYPERGLYCAEMIA [None]
